FAERS Safety Report 8554662-8 (Version None)
Quarter: 2012Q3

REPORT INFORMATION
  Report Type: 
  Country: None (occurrence: None)
  Receive Date: 20120731
  Receipt Date: 20120720
  Transmission Date: 20120928
  Serious: Yes (Death, Hospitalization, Disabling, Other)
  Sender: FDA-Public Use
  Company Number: US-009507513-1205USA02884

PATIENT

DRUGS (2)
  1. FOSAMAX [Suspect]
     Indication: OSTEOPOROSIS
     Route: 048
     Dates: start: 20040101
  2. FOSAMAX [Suspect]
     Indication: OSTEOPENIA

REACTIONS (8)
  - CEREBROVASCULAR ACCIDENT [None]
  - OSTEOPOROSIS [None]
  - FEMUR FRACTURE [None]
  - MYOCARDIAL INFARCTION [None]
  - LOW TURNOVER OSTEOPATHY [None]
  - STRESS FRACTURE [None]
  - PARKINSON'S DISEASE [None]
  - FALL [None]
